FAERS Safety Report 18133925 (Version 1)
Quarter: 2020Q3

REPORT INFORMATION
  Report Type: Spontaneous
  Country: TH (occurrence: TH)
  Receive Date: 20200811
  Receipt Date: 20200811
  Transmission Date: 20201103
  Serious: Yes (Death, Hospitalization)
  Sender: FDA-Public Use
  Company Number: NVSC2020TH220423

PATIENT
  Age: 59 Year
  Sex: Male

DRUGS (2)
  1. ZYKADIA [Suspect]
     Active Substance: CERITINIB
     Indication: LUNG ADENOCARCINOMA
     Dosage: 3 DF, QD (150)
     Route: 048
     Dates: start: 20190821
  2. ZYKADIA [Suspect]
     Active Substance: CERITINIB
     Indication: NON-SMALL CELL LUNG CANCER

REACTIONS (26)
  - Pain [Fatal]
  - Therapeutic response decreased [Fatal]
  - Abdominal distension [Fatal]
  - Gastrointestinal obstruction [Fatal]
  - Nausea [Fatal]
  - Vomiting [Fatal]
  - Fatigue [Fatal]
  - Liver function test abnormal [Fatal]
  - Dizziness [Fatal]
  - Gliosis [Fatal]
  - Arthralgia [Fatal]
  - Platelet count increased [Fatal]
  - Dyspnoea [Fatal]
  - Pulmonary mass [Fatal]
  - Lung opacity [Fatal]
  - Ascites [Fatal]
  - Alanine aminotransferase increased [Fatal]
  - Metastases to bone [Fatal]
  - Decreased appetite [Fatal]
  - Ileus [Fatal]
  - Aspartate aminotransferase increased [Fatal]
  - Metastases to liver [Fatal]
  - Metastases to adrenals [Fatal]
  - Acute kidney injury [Fatal]
  - Haematocrit decreased [Fatal]
  - Blood sodium decreased [Fatal]
